FAERS Safety Report 16425203 (Version 1)
Quarter: 2019Q2

REPORT INFORMATION
  Report Type: Spontaneous
  Country: SE (occurrence: SE)
  Receive Date: 20190613
  Receipt Date: 20190613
  Transmission Date: 20190711
  Serious: Yes (Other)
  Sender: FDA-Public Use
  Company Number: SE-MYLANLABS-2019M1054106

PATIENT
  Age: 68 Year
  Sex: Female

DRUGS (5)
  1. CIPROFLOXACIN. [Interacting]
     Active Substance: CIPROFLOXACIN
     Indication: OSTEOMYELITIS SALMONELLA
  2. INDOMETACIN [Interacting]
     Active Substance: INDOMETHACIN
     Indication: RHEUMATIC DISORDER
     Dosage: UNK
  3. INDOMETACIN [Interacting]
     Active Substance: INDOMETHACIN
     Dosage: UNK
  4. CIPROFLOXACIN. [Suspect]
     Active Substance: CIPROFLOXACIN
     Indication: RHEUMATIC DISORDER
     Dosage: 500 MG, BID
  5. CHLOROQUINE. [Interacting]
     Active Substance: CHLOROQUINE
     Indication: RHEUMATIC DISORDER
     Dosage: UNK

REACTIONS (5)
  - Neuropathy peripheral [Recovering/Resolving]
  - Anxiety [Recovered/Resolved]
  - Drug interaction [Unknown]
  - Dizziness [Recovered/Resolved]
  - Tremor [Recovered/Resolved]
